FAERS Safety Report 12220200 (Version 1)
Quarter: 2016Q1

REPORT INFORMATION
  Report Type: Spontaneous
  Country: US (occurrence: US)
  Receive Date: 20160330
  Receipt Date: 20160330
  Transmission Date: 20160526
  Serious: No
  Sender: FDA-Public Use
  Company Number: US-BAYER-2016-053311

PATIENT
  Age: 26 Year
  Sex: Female
  Weight: 45.35 kg

DRUGS (11)
  1. KEPPRA [Concomitant]
     Active Substance: LEVETIRACETAM
  2. INTUNAL [Concomitant]
  3. MELATONIN [Concomitant]
     Active Substance: MELATONIN
  4. CALCITRIOL. [Concomitant]
     Active Substance: CALCITRIOL
  5. LAMICTAL [Concomitant]
     Active Substance: LAMOTRIGINE
  6. VITAMIN D [ERGOCALCIFEROL] [Concomitant]
  7. CALCIUM CARBONATE [CALCIUM CARBONATE] [Concomitant]
  8. CLONIDINE. [Concomitant]
     Active Substance: CLONIDINE
  9. MIRALAX [Suspect]
     Active Substance: POLYETHYLENE GLYCOL 3350
     Indication: CONSTIPATION
     Dosage: 1 DF, QD
  10. MIRALAX [Suspect]
     Active Substance: POLYETHYLENE GLYCOL 3350
     Indication: CONSTIPATION
     Dosage: 1 DF, QD
  11. VYVANSE [Concomitant]
     Active Substance: LISDEXAMFETAMINE DIMESYLATE

REACTIONS (2)
  - Product use issue [None]
  - Drug ineffective [None]
